FAERS Safety Report 6355106-7 (Version None)
Quarter: 2009Q3

REPORT INFORMATION
  Report Type: 
  Country: None (occurrence: None)
  Receive Date: 20090914
  Receipt Date: 20090907
  Transmission Date: 20100115
  Serious: Yes (Life-Threatening)
  Sender: FDA-Public Use
  Company Number: JP-ASTRAZENECA-2009SE05067

PATIENT
  Age: 22296 Day
  Sex: Female

DRUGS (13)
  1. BLOPRESS [Suspect]
     Indication: HYPERTENSION
     Route: 048
     Dates: start: 20021105, end: 20031216
  2. BLOPRESS [Interacting]
     Route: 048
     Dates: start: 20031217
  3. TANATRIL [Interacting]
     Indication: HYPERTENSION
     Route: 048
     Dates: start: 20081107, end: 20090508
  4. EVOXAC [Interacting]
     Indication: SJOGREN'S SYNDROME
     Route: 048
     Dates: start: 20061201, end: 20090310
  5. EVOXAC [Interacting]
     Route: 048
  6. 2MG CERCINE TABLETS [Concomitant]
     Indication: HYPERTENSION
     Route: 048
     Dates: start: 20021017
  7. ASPIRIN [Concomitant]
     Indication: MYOCARDIAL ISCHAEMIA
     Route: 048
  8. GASTER D [Concomitant]
     Indication: GASTRITIS
     Route: 048
  9. SHIMBU-TO [Concomitant]
     Indication: HYPERTENSION
     Route: 048
     Dates: end: 20090605
  10. HICEE GRANULES 25% [Concomitant]
     Indication: PIGMENTATION DISORDER
     Route: 048
  11. MYSLEE [Concomitant]
     Indication: INSOMNIA
     Route: 048
  12. NORVASC [Concomitant]
     Indication: HYPERTENSION
     Route: 048
     Dates: start: 20090428
  13. BAKUMONDOUTO [Concomitant]
     Indication: HYPERTENSION
     Route: 048

REACTIONS (2)
  - DRUG INTERACTION [None]
  - HYPERTENSION [None]
